FAERS Safety Report 7897336-9 (Version None)
Quarter: 2011Q4

REPORT INFORMATION
  Report Type: 
  Country: None (occurrence: None)
  Receive Date: 20111103
  Receipt Date: 20111024
  Transmission Date: 20120403
  Serious: Yes (Other)
  Sender: FDA-Public Use
  Company Number: 1000024944

PATIENT
  Sex: Female

DRUGS (2)
  1. SAVELLA [Suspect]
     Indication: FIBROMYALGIA
     Dosage: MORE THAN 1 YEAR
  2. ZOMIG-ZMT (ZOLMITRIPTAN) (ZOLMITRIPTAN) [Concomitant]

REACTIONS (1)
  - RETINOPATHY [None]
